FAERS Safety Report 23847524 (Version 1)
Quarter: 2024Q2

REPORT INFORMATION
  Report Type: Spontaneous
  Country: US (occurrence: US)
  Receive Date: 20240513
  Receipt Date: 20240513
  Transmission Date: 20240715
  Serious: No
  Sender: FDA-Public Use
  Company Number: US-JNJFOC-20240485037

PATIENT
  Age: 25 Year
  Sex: Female

DRUGS (1)
  1. TYLENOL [Suspect]
     Active Substance: ACETAMINOPHEN
     Indication: Pain
     Dosage: TOOK TYLENOL, 1ST DOSE LASTED A WHILE, 2-3 DAYS; 2ND DOES
     Route: 065

REACTIONS (1)
  - Inappropriate schedule of product administration [Unknown]
